FAERS Safety Report 20629949 (Version 1)
Quarter: 2022Q1

REPORT INFORMATION
  Report Type: Spontaneous
  Country: US (occurrence: US)
  Receive Date: 20220324
  Receipt Date: 20220324
  Transmission Date: 20220423
  Serious: Yes (Other)
  Sender: FDA-Public Use
  Company Number: US-AMGEN-USASP2022047055

PATIENT
  Sex: Female

DRUGS (3)
  1. DARBEPOETIN ALFA [Suspect]
     Active Substance: DARBEPOETIN ALFA
     Indication: Anaemia
     Dosage: UNK, QWK
     Route: 058
  2. FERROUS SULFATE [Concomitant]
     Active Substance: FERROUS SULFATE
     Dosage: UNK UNK, TID
     Route: 048
  3. FERRIC GLUCONATE TRIHYDRATE [Concomitant]
     Active Substance: FERRIC GLUCONATE TRIHYDRATE
     Dosage: UNK UNK, QD
     Route: 042

REACTIONS (2)
  - Necrosis ischaemic [Unknown]
  - Haemoglobin decreased [Unknown]
